FAERS Safety Report 8867273 (Version 1)
Quarter: 2012Q4

REPORT INFORMATION
  Report Type: 
  Country: US (occurrence: US)
  Receive Date: 20121025
  Receipt Date: 20121025
  Transmission Date: 20130627
  Serious: No
  Sender: FDA-Public Use
  Company Number: US-AMGEN-USASP2012015852

PATIENT
  Age: 55 Year
  Sex: Female

DRUGS (9)
  1. ENBREL [Suspect]
     Indication: PRODUCT USED FOR UNKNOWN INDICATION
     Dosage: 50 mg, qwk
     Route: 058
  2. RITALIN [Concomitant]
     Dosage: 5 mg, UNK
  3. MICARDIS [Concomitant]
     Dosage: 40 mg, UNK
  4. MULTIVITAMIN                       /00097801/ [Concomitant]
  5. CELEXA                             /00582602/ [Concomitant]
     Dosage: 40 mg, UNK
  6. SYNTHROID [Concomitant]
     Dosage: 50 mug, UNK
  7. LOVASTATIN [Concomitant]
     Dosage: 10 mg, UNK
  8. CALCIUM WITH VITAMIN D             /00944201/ [Concomitant]
  9. CHONDROITIN COMPLEX [Concomitant]

REACTIONS (1)
  - Increased tendency to bruise [Unknown]
